FAERS Safety Report 5732124-0 (Version None)
Quarter: 2008Q2

REPORT INFORMATION
  Report Type: 
  Country: None (occurrence: None)
  Receive Date: 20080508
  Receipt Date: 20080429
  Transmission Date: 20081010
  Serious: Yes (Hospitalization, Other)
  Sender: FDA-Public Use
  Company Number: US-PFIZER INC-2008037404

PATIENT
  Age: 55 Year
  Sex: Female

DRUGS (3)
  1. GEODON [Suspect]
     Route: 048
     Dates: start: 20070921, end: 20071027
  2. ATIVAN [Concomitant]
     Route: 048
  3. EFFEXOR [Concomitant]
     Route: 048

REACTIONS (5)
  - CONTUSION [None]
  - JOINT SWELLING [None]
  - SALIVARY GLAND NEOPLASM [None]
  - TIC [None]
  - UNEMPLOYMENT [None]
